FAERS Safety Report 21125954 (Version 1)
Quarter: 2022Q3

REPORT INFORMATION
  Report Type: Spontaneous
  Country: US (occurrence: US)
  Receive Date: 20220725
  Receipt Date: 20220725
  Transmission Date: 20221026
  Serious: No
  Sender: FDA-Public Use
  Company Number: US-ABBVIE-21K-163-4071220-00

PATIENT
  Sex: Female

DRUGS (2)
  1. ORILISSA [Suspect]
     Active Substance: ELAGOLIX SODIUM
     Indication: Endometriosis
     Dosage: UNKNOWN
     Route: 048
  2. NORETHINDRONE [Concomitant]
     Active Substance: NORETHINDRONE
     Indication: Product used for unknown indication
     Route: 065

REACTIONS (8)
  - Abnormal uterine bleeding [Unknown]
  - Stress [Unknown]
  - Emotional disorder [Unknown]
  - Muscle spasms [Unknown]
  - Back pain [Unknown]
  - Mood swings [Unknown]
  - Pelvic pain [Unknown]
  - Abdominal pain [Unknown]
